FAERS Safety Report 14217312 (Version 5)
Quarter: 2018Q2

REPORT INFORMATION
  Report Type: Spontaneous
  Country: IT (occurrence: IT)
  Receive Date: 20171123
  Receipt Date: 20180416
  Transmission Date: 20180711
  Serious: Yes (Other)
  Sender: FDA-Public Use
  Company Number: IT-ROCHE-2026004

PATIENT
  Age: 79 Year
  Sex: Female

DRUGS (2)
  1. TRIPLIAM [Concomitant]
     Active Substance: AMLODIPINE\INDAPAMIDE\PERINDOPRIL
     Dosage: 5 MG/1.25 MG/5 MG- 30 TABLETS IN PP CONTAINER
     Route: 065
  2. DIAZEPAM. [Suspect]
     Active Substance: DIAZEPAM
     Indication: ANXIETY
     Dosage: 20 DROPS TOTAL
     Route: 048
     Dates: start: 20171027, end: 20171027

REACTIONS (2)
  - Angioedema [Unknown]
  - Face oedema [Unknown]

NARRATIVE: CASE EVENT DATE: 20171027
